FAERS Safety Report 7965521-3 (Version None)
Quarter: 2011Q4

REPORT INFORMATION
  Report Type: 
  Country: None (occurrence: None)
  Receive Date: 20111208
  Receipt Date: 20111128
  Transmission Date: 20120403
  Serious: Yes (Hospitalization, Disabling, Other)
  Sender: FDA-Public Use
  Company Number: US-JNJFOC-20111008649

PATIENT
  Sex: Female
  Weight: 70.76 kg

DRUGS (4)
  1. SOLU-MEDROL [Concomitant]
     Indication: ARTHRITIS
     Route: 065
     Dates: start: 20101207
  2. PREDNISONE TAB [Concomitant]
     Indication: ARTHRITIS
     Route: 065
  3. REMICADE [Suspect]
     Indication: ARTHRITIS
     Route: 042
     Dates: start: 20101207
  4. METHOTREXATE [Concomitant]
     Indication: ARTHRITIS
     Route: 065

REACTIONS (2)
  - JOINT SWELLING [None]
  - ARTHRITIS BACTERIAL [None]
